FAERS Safety Report 7278593-9 (Version None)
Quarter: 2011Q1

REPORT INFORMATION
  Report Type: 
  Country: None (occurrence: None)
  Receive Date: 20110207
  Receipt Date: 20110201
  Transmission Date: 20110831
  Serious: Yes (Hospitalization, Congenital Anomaly)
  Sender: FDA-Public Use
  Company Number: GXKR2011DE00748

PATIENT
  Sex: Male
  Weight: 3.71 kg

DRUGS (1)
  1. PAROXETINE HCL [Suspect]
     Dosage: MATERNAL DOSE: 25 MG/D (MAX.)
     Route: 064

REACTIONS (4)
  - TALIPES [None]
  - AGITATION NEONATAL [None]
  - NEONATAL RESPIRATORY DISTRESS SYNDROME [None]
  - DRUG EXPOSURE DURING PREGNANCY [None]
